FAERS Safety Report 10678131 (Version 1)
Quarter: 2014Q4

REPORT INFORMATION
  Report Type: Spontaneous
  Country: IN (occurrence: None)
  Receive Date: 20141223
  Receipt Date: 20141223
  Transmission Date: 20150529
  Serious: Yes (Hospitalization)
  Sender: FDA-Public Use
  Company Number: 2014HINLIT1062

PATIENT
  Age: 34 Week
  Sex: Male
  Weight: .9 kg

DRUGS (2)
  1. NEVIRAPINE. [Suspect]
     Active Substance: NEVIRAPINE
     Indication: PROPHYLAXIS
     Dosage: TILL SIX WEEKS OF AGE
     Route: 048
  2. LAMIVUDINE/STAVUDINE/NEVIRAPINE [Suspect]
     Active Substance: LAMIVUDINE\NEVIRAPINE\STAVUDINE
     Indication: PRODUCT USED FOR UNKNOWN INDICATION
     Route: 064

REACTIONS (5)
  - Lactic acidosis [None]
  - Caesarean section [None]
  - Small for dates baby [None]
  - Foetal exposure during pregnancy [None]
  - Premature baby [None]
